FAERS Safety Report 9919153 (Version 2)
Quarter: 2014Q1

REPORT INFORMATION
  Report Type: Spontaneous
  Country: US (occurrence: US)
  Receive Date: 20140224
  Receipt Date: 20140314
  Transmission Date: 20141002
  Serious: Yes (Death, Hospitalization)
  Sender: FDA-Public Use
  Company Number: US-ROCHE-1348224

PATIENT
  Age: 69 Year
  Sex: Female
  Weight: 103.51 kg

DRUGS (3)
  1. GAZYVA [Suspect]
     Indication: CHRONIC LYMPHOCYTIC LEUKAEMIA
     Dosage: FOLLOWED STANDARD PROTOCOL
     Route: 042
     Dates: start: 20140204, end: 20140211
  2. GAZYVA [Suspect]
     Route: 042
     Dates: start: 20140203
  3. CHLORAMBUCIL [Concomitant]
     Indication: CHRONIC LYMPHOCYTIC LEUKAEMIA

REACTIONS (6)
  - Dizziness [Fatal]
  - Headache [Fatal]
  - Nausea [Fatal]
  - Coma [Fatal]
  - Haemorrhage intracranial [Fatal]
  - Fall [Unknown]
